FAERS Safety Report 20559787 (Version 1)
Quarter: 2022Q1

REPORT INFORMATION
  Report Type: Report from Study
  Country: IN (occurrence: IN)
  Receive Date: 20220307
  Receipt Date: 20220307
  Transmission Date: 20220423
  Serious: Yes (Death)
  Sender: FDA-Public Use
  Company Number: IN-NOVARTISPH-NVSC2022IN051167

PATIENT
  Age: 47 Year
  Sex: Female

DRUGS (1)
  1. NEORAL [Suspect]
     Active Substance: CYCLOSPORINE
     Indication: Renal transplant
     Dosage: 100 MG, UNKNOWN
     Route: 065
     Dates: start: 20171208

REACTIONS (1)
  - Death [Fatal]

NARRATIVE: CASE EVENT DATE: 20211112
